FAERS Safety Report 7448128-6 (Version None)
Quarter: 2011Q2

REPORT INFORMATION
  Report Type: 
  Country: None (occurrence: None)
  Receive Date: 20110429
  Receipt Date: 20100603
  Transmission Date: 20111010
  Serious: No
  Sender: FDA-Public Use
  Company Number: US-ASTRAZENECA-2009SE14186

PATIENT
  Age: 75 Year
  Sex: Female
  Weight: 58.1 kg

DRUGS (3)
  1. NEXIUM [Suspect]
     Route: 048
     Dates: start: 20070101
  2. NEXIUM [Suspect]
     Route: 048
  3. LIPITOR [Concomitant]

REACTIONS (4)
  - HEADACHE [None]
  - ARTHRALGIA [None]
  - DRUG INEFFECTIVE [None]
  - PAIN IN EXTREMITY [None]
